FAERS Safety Report 12536829 (Version 1)
Quarter: 2016Q3

REPORT INFORMATION
  Report Type: Report from Study
  Country: JP (occurrence: JP)
  Receive Date: 20160707
  Receipt Date: 20160707
  Transmission Date: 20161109
  Serious: Yes (Hospitalization)
  Sender: FDA-Public Use
  Company Number: JP-SA-2016SA122794

PATIENT
  Age: 70 Year
  Sex: Male
  Weight: 58 kg

DRUGS (12)
  1. PLAVIX [Suspect]
     Active Substance: CLOPIDOGREL BISULFATE
     Indication: ARTERIAL OCCLUSIVE DISEASE
     Route: 065
     Dates: start: 20120619, end: 20130116
  2. ALSETIN [Concomitant]
     Dosage: 5MG
     Dates: end: 20120710
  3. NERISONE [Concomitant]
     Active Substance: DIFLUCORTOLONE VALERATE
     Dosage: OINTMENT
     Dates: start: 20121017, end: 20121211
  4. PLAVIX [Suspect]
     Active Substance: CLOPIDOGREL BISULFATE
     Indication: ARTERIAL OCCLUSIVE DISEASE
     Route: 065
     Dates: end: 20120618
  5. LECTISOL [Concomitant]
     Active Substance: DAPSONE
     Dates: start: 20121221, end: 20130123
  6. URALYT-U [Concomitant]
     Active Substance: POTASSIUM CITRATE\TRISODIUM CITRATE DIHYDRATE
     Dosage: COMBINATION POWDER 1 G
     Dates: start: 20120822, end: 20121001
  7. ALLEGRA [Concomitant]
     Active Substance: FEXOFENADINE HYDROCHLORIDE
     Dosage: 60MG
     Dates: start: 20120928, end: 20121017
  8. RINDERON VG [Concomitant]
     Active Substance: BETAMETHASONE VALERATE\GENTAMICIN SULFATE
     Dosage: OINTMENT
     Dates: start: 20120928, end: 20121016
  9. DERMOVATE [Concomitant]
     Active Substance: CLOBETASOL
     Dates: start: 20121212, end: 20130114
  10. ALLELOCK [Concomitant]
     Active Substance: OLOPATADINE HYDROCHLORIDE
     Dates: start: 20121017, end: 20121221
  11. AMLODIPINE [Concomitant]
     Active Substance: AMLODIPINE BESYLATE
     Dates: start: 20120711
  12. EURAX [Concomitant]
     Active Substance: CROTAMITON
     Dates: start: 20121017, end: 20130114

REACTIONS (4)
  - Anaemia [Recovered/Resolved]
  - Rash [Recovered/Resolved]
  - Haemorrhagic erosive gastritis [Recovered/Resolved]
  - Asthma [Recovering/Resolving]

NARRATIVE: CASE EVENT DATE: 20120706
